FAERS Safety Report 5136283-2 (Version None)
Quarter: 2006Q4

REPORT INFORMATION
  Report Type: 
  Country: None (occurrence: None)
  Receive Date: 20061027
  Receipt Date: 20060919
  Transmission Date: 20070319
  Serious: Yes (Death, Hospitalization, Congenital Anomaly)
  Sender: FDA-Public Use
  Company Number: US-GLAXOSMITHKLINE-A0620719A

PATIENT
  Sex: Male

DRUGS (1)
  1. PAXIL [Suspect]

REACTIONS (3)
  - CONGENITAL PULMONARY ARTERY ANOMALY [None]
  - DEFORMITY [None]
  - DRUG EXPOSURE DURING PREGNANCY [None]
